FAERS Safety Report 17922415 (Version 2)
Quarter: 2020Q3

REPORT INFORMATION
  Report Type: Spontaneous
  Country: US (occurrence: US)
  Receive Date: 20200622
  Receipt Date: 20200901
  Transmission Date: 20201103
  Serious: No
  Sender: FDA-Public Use
  Company Number: US-PFIZER INC-2020238828

PATIENT
  Age: 55 Year
  Sex: Male

DRUGS (4)
  1. SULFASALAZINE. [Concomitant]
     Active Substance: SULFASALAZINE
     Dosage: UNK
  2. METHOTREXATE. [Concomitant]
     Active Substance: METHOTREXATE
     Dosage: UNK
  3. XELJANZ XR [Suspect]
     Active Substance: TOFACITINIB CITRATE
     Indication: PSORIATIC ARTHROPATHY
     Dosage: 11 MG, DAILY
     Route: 048
     Dates: start: 20200516
  4. SIMVASTATIN. [Concomitant]
     Active Substance: SIMVASTATIN
     Dosage: UNK

REACTIONS (3)
  - Therapeutic response unexpected [Unknown]
  - Blood cholesterol increased [Unknown]
  - Blood triglycerides increased [Unknown]
